FAERS Safety Report 8256341-3 (Version None)
Quarter: 2012Q1

REPORT INFORMATION
  Report Type: 
  Country: None (occurrence: None)
  Receive Date: 20120322
  Receipt Date: 20111123
  Transmission Date: 20120608
  Serious: Yes (Hospitalization)
  Sender: FDA-Public Use
  Company Number: UTC-011997

PATIENT
  Age: 62 Year
  Sex: Female
  Weight: 79.09 kg

DRUGS (3)
  1. OXYGEN (OXYGEN) [Concomitant]
  2. TYVASO [Suspect]
     Indication: PULMONARY ARTERIAL HYPERTENSION
     Dosage: 192 MCG (48 MCG, 4 IN 1 D), INHALATION
     Route: 055
     Dates: start: 20110414
  3. REVATIO [Concomitant]

REACTIONS (3)
  - DEVICE FAILURE [None]
  - CARDIAC FAILURE CONGESTIVE [None]
  - RESPIRATORY DISTRESS [None]
